FAERS Safety Report 24179176 (Version 1)
Quarter: 2024Q3

REPORT INFORMATION
  Report Type: Spontaneous
  Country: US (occurrence: US)
  Receive Date: 20240806
  Receipt Date: 20240806
  Transmission Date: 20241016
  Serious: No
  Sender: MERCK
  Company Number: US-009507513-2407USA011373

PATIENT
  Sex: Female

DRUGS (6)
  1. KEYTRUDA [Suspect]
     Active Substance: PEMBROLIZUMAB
     Indication: Lung neoplasm malignant
     Route: 042
     Dates: start: 202401
  2. GABAPENTIN [Concomitant]
     Active Substance: GABAPENTIN
  3. TACROLIMUS [Concomitant]
     Active Substance: TACROLIMUS
  4. ALLOPURINOL [Concomitant]
     Active Substance: ALLOPURINOL
     Indication: Gout
  5. OZEMPIC [Concomitant]
     Active Substance: SEMAGLUTIDE
  6. CYMBALTA [Concomitant]
     Active Substance: DULOXETINE HYDROCHLORIDE

REACTIONS (11)
  - Balance disorder [Not Recovered/Not Resolved]
  - Scratch [Not Recovered/Not Resolved]
  - Skin ulcer [Not Recovered/Not Resolved]
  - Thyroid hormones decreased [Not Recovered/Not Resolved]
  - White blood cell count increased [Unknown]
  - Gastrooesophageal reflux disease [Unknown]
  - Amnesia [Not Recovered/Not Resolved]
  - Blood calcium increased [Unknown]
  - Fatigue [Not Recovered/Not Resolved]
  - Decreased appetite [Not Recovered/Not Resolved]
  - Rash [Not Recovered/Not Resolved]

NARRATIVE: CASE EVENT DATE: 20240101
